FAERS Safety Report 7810730-7 (Version None)
Quarter: 2011Q4

REPORT INFORMATION
  Report Type: 
  Country: None (occurrence: None)
  Receive Date: 20111006
  Receipt Date: 20110929
  Transmission Date: 20120403
  Serious: Yes (Hospitalization, Other)
  Sender: FDA-Public Use
  Company Number: CIP11000054

PATIENT
  Age: 57 Year
  Sex: Female

DRUGS (18)
  1. LEXAPRO [Concomitant]
  2. CELEXA	/00582602/ (CITALOPRAM HYDROBROMIDE) [Concomitant]
  3. MULTIVITAMIN  /00831701/ (VITAMINS NOS) [Concomitant]
  4. AMBIEN [Concomitant]
  5. BACITRACIN [Concomitant]
  6. ACTONEL [Suspect]
     Indication: OSTEOPENIA
     Dosage: 35 MG ONCE WEEKLY, ORAL
     Route: 048
     Dates: start: 20030515, end: 20071022
  7. AMITRIPTYLINE /00002202/ (AMITRIPTYLINE HYDROCHLORIDE) [Concomitant]
  8. TRAZODONE HCL [Concomitant]
  9. WELLBUTRIN XL [Concomitant]
  10. CITALOPRAM HBR (CITALOPRAM HYDROBROMIDE) [Concomitant]
  11. CYMBALTA [Concomitant]
  12. ASPIRIN [Concomitant]
  13. FOSAMAX [Suspect]
     Indication: OSTEOPENIA
     Dosage: 70 MG ONCE WEEKLY, ORAL
     Route: 048
     Dates: start: 20010101, end: 20081201
  14. CALCIUM PLUS D3 (CALCIUM, COLECALCIFEROL) [Concomitant]
  15. AMOXICILLIN TRIHYDRATE W/CLAVULANTE POTASSIUM (AMOXICILLIN TRIHYDRATE, [Concomitant]
  16. VALTREX [Concomitant]
  17. TRIAMCINOLONE [Concomitant]
  18. FLONASE [Concomitant]

REACTIONS (27)
  - PNEUMONIA [None]
  - WEIGHT BEARING DIFFICULTY [None]
  - VITAMIN D DECREASED [None]
  - FEMUR FRACTURE [None]
  - PLEURAL EFFUSION [None]
  - FRACTURE NONUNION [None]
  - VOMITING [None]
  - LIMB DISCOMFORT [None]
  - COUGH [None]
  - ARTHRALGIA [None]
  - DEVICE FAILURE [None]
  - PAIN [None]
  - FALL [None]
  - GAIT DISTURBANCE [None]
  - MUSCLE SPASMS [None]
  - LIMB INJURY [None]
  - TRAUMATIC HAEMATOMA [None]
  - NAUSEA [None]
  - HAEMATOCRIT DECREASED [None]
  - MOBILITY DECREASED [None]
  - STRESS FRACTURE [None]
  - PAIN IN EXTREMITY [None]
  - LOW TURNOVER OSTEOPATHY [None]
  - BONE DISORDER [None]
  - IMPAIRED HEALING [None]
  - DEVICE BREAKAGE [None]
  - MUSCULOSKELETAL DISORDER [None]
